FAERS Safety Report 18020151 (Version 1)
Quarter: 2020Q3

REPORT INFORMATION
  Report Type: Spontaneous
  Country: US (occurrence: US)
  Receive Date: 20200714
  Receipt Date: 20200714
  Transmission Date: 20201103
  Serious: No
  Sender: FDA-Public Use
  Company Number: None

PATIENT
  Age: 62 Year
  Sex: Male
  Weight: 118 kg

DRUGS (2)
  1. ERENUMAB?AOOE (ERENUMAB?AOOE 70MG/ML AUTOINJECTOR, 1ML) [Suspect]
     Active Substance: ERENUMAB-AOOE
     Indication: PAIN
     Dosage: ?          OTHER STRENGTH:70MG/ML, 1ML;?
     Route: 058
     Dates: start: 20200526, end: 20200616
  2. MORPHINE (MORPHINE SO4 30MG TAB, SA) [Suspect]
     Active Substance: MORPHINE SULFATE
     Indication: PAIN
     Route: 048
     Dates: start: 19980804

REACTIONS (1)
  - Constipation [None]

NARRATIVE: CASE EVENT DATE: 20200530
